FAERS Safety Report 8578484-7 (Version None)
Quarter: 2012Q3

REPORT INFORMATION
  Report Type: 
  Country: None (occurrence: None)
  Receive Date: 20120726
  Receipt Date: 20120718
  Transmission Date: 20120928
  Serious: Yes (Death)
  Sender: FDA-Public Use
  Company Number: UTC-019869

PATIENT
  Age: 77 Year
  Sex: Male
  Weight: 67.27 kg

DRUGS (1)
  1. REMODULIN [Suspect]
     Indication: PULMONARY ARTERIAL HYPERTENSION
     Dosage: 95.04 UG/KG (0.066 UG/KG, 1 IN 1 MIN), INTRAVENOUS DRIP
     Route: 041
     Dates: start: 20101210, end: 20120601

REACTIONS (1)
  - DEATH [None]
